FAERS Safety Report 12728336 (Version 1)
Quarter: 2016Q3

REPORT INFORMATION
  Report Type: Spontaneous
  Country: US (occurrence: US)
  Receive Date: 20160907
  Receipt Date: 20160907
  Transmission Date: 20161109
  Serious: Yes (Disabling)
  Sender: FDA-Public Use
  Company Number: None

PATIENT
  Age: 51 Year
  Sex: Female
  Weight: 85.5 kg

DRUGS (2)
  1. HUMIRA [Suspect]
     Active Substance: ADALIMUMAB
     Indication: PSORIATIC ARTHROPATHY
     Dosage: OTHER STRENGTH:;OTHER DOSE:;OTHER FREQUENCY:EVERY 2 WEEKS;OTHER ROUTE:
     Route: 058
     Dates: start: 20150301, end: 20150430
  2. HUMIRA [Suspect]
     Active Substance: ADALIMUMAB
     Indication: PSORIASIS
     Dosage: OTHER STRENGTH:;OTHER DOSE:;OTHER FREQUENCY:EVERY 2 WEEKS;OTHER ROUTE:
     Route: 058
     Dates: start: 20150301, end: 20150430

REACTIONS (4)
  - Demyelination [None]
  - Central nervous system lesion [None]
  - Hypoaesthesia [None]
  - Paraesthesia [None]

NARRATIVE: CASE EVENT DATE: 20150401
